FAERS Safety Report 13793551 (Version 2)
Quarter: 2017Q3

REPORT INFORMATION
  Report Type: Spontaneous
  Country: US (occurrence: US)
  Receive Date: 20170726
  Receipt Date: 20170823
  Transmission Date: 20171127
  Serious: No
  Sender: FDA-Public Use
  Company Number: US-TEVA-791274USA

PATIENT
  Age: 65 Year
  Sex: Female

DRUGS (2)
  1. SYNRIBO [Suspect]
     Active Substance: OMACETAXINE MEPESUCCINATE
     Indication: CHRONIC MYELOID LEUKAEMIA
     Dosage: 2.5 MG/0.71 ML
     Dates: start: 20170810
  2. SYNRIBO [Suspect]
     Active Substance: OMACETAXINE MEPESUCCINATE
     Indication: CHRONIC LEUKAEMIA
     Dosage: 2.5MG/0.71ML
     Dates: start: 20170713

REACTIONS (4)
  - Injection site haemorrhage [Unknown]
  - Injection site exfoliation [Unknown]
  - Nausea [Unknown]
  - Injection site erythema [Unknown]

NARRATIVE: CASE EVENT DATE: 201707
